FAERS Safety Report 13934537 (Version 1)
Quarter: 2017Q3

REPORT INFORMATION
  Report Type: Spontaneous
  Country: US (occurrence: US)
  Receive Date: 20170905
  Receipt Date: 20170905
  Transmission Date: 20171127
  Serious: Yes (Other)
  Sender: FDA-Public Use
  Company Number: US-BRISTOL-MYERS SQUIBB COMPANY-BMS-2017-077610

PATIENT
  Sex: Female

DRUGS (1)
  1. ELIQUIS [Suspect]
     Active Substance: APIXABAN
     Indication: PRODUCT USED FOR UNKNOWN INDICATION
     Route: 065

REACTIONS (7)
  - Haemorrhage [Unknown]
  - Contusion [Unknown]
  - Joint swelling [Unknown]
  - Gait disturbance [Unknown]
  - Choking [Unknown]
  - Peripheral swelling [Unknown]
  - Pain in extremity [Unknown]
